FAERS Safety Report 5607686-4 (Version None)
Quarter: 2008Q1

REPORT INFORMATION
  Report Type: 
  Country: None (occurrence: None)
  Receive Date: 20080128
  Receipt Date: 20080128
  Transmission Date: 20080703
  Serious: Yes (Death)
  Sender: FDA-Public Use
  Company Number: None

PATIENT
  Sex: Male
  Weight: 90 kg

DRUGS (6)
  1. ALDURAZYME [Suspect]
     Indication: MUCOPOLYSACCHARIDOSIS I
     Dosage: 1.74 MG ONCE IT
     Route: 038
     Dates: start: 20080124, end: 20080124
  2. ALDURAZYME [Suspect]
     Indication: SPINAL CORD COMPRESSION
     Dosage: 1.74 MG ONCE IT
     Route: 038
     Dates: start: 20080124, end: 20080124
  3. BENADRYL [Concomitant]
  4. ADVIL LIQUI-GELS [Concomitant]
  5. VICODIN [Concomitant]
  6. ZOFRAN [Concomitant]

REACTIONS (3)
  - HEADACHE [None]
  - NECK PAIN [None]
  - SELF-MEDICATION [None]
